FAERS Safety Report 17260168 (Version 1)
Quarter: 2020Q1

REPORT INFORMATION
  Report Type: Other
  Country: IT (occurrence: IT)
  Receive Date: 20200111
  Receipt Date: 20200111
  Transmission Date: 20200409
  Serious: Yes (Life-Threatening, Other)
  Sender: FDA-Public Use
  Company Number: IT-SHANGHAI HENGRUI PHARMACEUTICAL CO., LTD.-2078872

PATIENT
  Age: 16 Year
  Sex: Male

DRUGS (5)
  1. REMIFENTANIL [Suspect]
     Active Substance: REMIFENTANIL
  2. SUGAMMADEX [Suspect]
     Active Substance: SUGAMMADEX
  3. PROPOFOL. [Suspect]
     Active Substance: PROPOFOL
  4. ROCURONIUM [Suspect]
     Active Substance: ROCURONIUM BROMIDE
  5. SEVOFLURANE USP, 100%, LIQUID FOR INHALATION [Suspect]
     Active Substance: SEVOFLURANE
     Indication: MAINTENANCE OF ANAESTHESIA

REACTIONS (1)
  - Pulmonary alveolar haemorrhage [Recovered/Resolved]
